FAERS Safety Report 4771424-8 (Version None)
Quarter: 2005Q3

REPORT INFORMATION
  Report Type: 
  Country: None (occurrence: None)
  Receive Date: 20050915
  Receipt Date: 20050906
  Transmission Date: 20060218
  Serious: Yes (Hospitalization)
  Sender: FDA-Public Use
  Company Number: 163-20785-05090057

PATIENT

DRUGS (1)
  1. THALOMID [Suspect]
     Dosage: ORAL
     Route: 048

REACTIONS (3)
  - JAUNDICE [None]
  - PAROTID GLAND ENLARGEMENT [None]
  - SALIVARY GLAND ENLARGEMENT [None]
